FAERS Safety Report 16420695 (Version 1)
Quarter: 2019Q2

REPORT INFORMATION
  Report Type: Spontaneous
  Country: US (occurrence: US)
  Receive Date: 20190506
  Receipt Date: 20190506
  Transmission Date: 20190711
  Serious: Yes (Death)
  Sender: FDA-Public Use
  Company Number: None

PATIENT
  Age: 81 Year
  Sex: Female

DRUGS (23)
  1. VITAMIN D [Concomitant]
     Active Substance: VITAMIN D NOS
  2. PRAVAATATIN SODIUM [Concomitant]
  3. HYDRALAZINE HCI [Concomitant]
  4. CARTIA [Concomitant]
  5. TORSEMIDE. [Concomitant]
     Active Substance: TORSEMIDE
  6. MELATONIN [Concomitant]
     Active Substance: MELATONIN
  7. XARELTO [Concomitant]
     Active Substance: RIVAROXABAN
  8. SPIRONOLACTONE. [Concomitant]
     Active Substance: SPIRONOLACTONE
  9. NEURONTIN [Concomitant]
     Active Substance: GABAPENTIN
  10. CETIRIZINE HCI [Concomitant]
     Active Substance: CETIRIZINE HYDROCHLORIDE
  11. IBRANCE [Suspect]
     Active Substance: PALBOCICLIB
     Indication: BREAST CANCER FEMALE
     Route: 048
     Dates: start: 20190118
  12. METHIMAZOLE. [Concomitant]
     Active Substance: METHIMAZOLE
  13. HUMALOG [Concomitant]
     Active Substance: INSULIN LISPRO
  14. FLUDROCARTISONE [Concomitant]
  15. MAG-OX [Concomitant]
     Active Substance: MAGNESIUM OXIDE
  16. IPRATROPIUM BROMIDE. [Concomitant]
     Active Substance: IPRATROPIUM BROMIDE
  17. PROMETHAZINE HCI [Concomitant]
  18. FLONASE [Concomitant]
     Active Substance: FLUTICASONE PROPIONATE
  19. CENTRUM SILVER [Concomitant]
     Active Substance: MINERALS\VITAMINS
  20. PAROXETINE. [Concomitant]
     Active Substance: PAROXETINE
  21. HCI [Concomitant]
  22. LANTUS [Concomitant]
     Active Substance: INSULIN GLARGINE
  23. GNP VITAMIN C [Concomitant]

REACTIONS (1)
  - Death [None]
